FAERS Safety Report 13360216 (Version 1)
Quarter: 2017Q1

REPORT INFORMATION
  Report Type: Report from Study
  Country: US (occurrence: US)
  Receive Date: 20170322
  Receipt Date: 20170322
  Transmission Date: 20170429
  Serious: Yes (Other)
  Sender: FDA-Public Use
  Company Number: US-UCBSA-2017010770

PATIENT
  Age: 4 Year
  Sex: Female

DRUGS (3)
  1. VALIUM [Concomitant]
     Active Substance: DIAZEPAM
     Indication: SEIZURE
     Dosage: UNK
  2. LEVETIRACETAM. [Suspect]
     Active Substance: LEVETIRACETAM
     Indication: PRODUCT USED FOR UNKNOWN INDICATION
     Dosage: UNK
  3. STRATTERA [Suspect]
     Active Substance: ATOMOXETINE HYDROCHLORIDE
     Indication: PRODUCT USED FOR UNKNOWN INDICATION
     Dosage: UNK

REACTIONS (8)
  - Abnormal behaviour [Unknown]
  - Communication disorder [Unknown]
  - Abdominal pain upper [Unknown]
  - Brain injury [Unknown]
  - Generalised tonic-clonic seizure [Unknown]
  - Decreased appetite [Unknown]
  - Drug ineffective [Unknown]
  - Seizure [Unknown]
